FAERS Safety Report 13928930 (Version 1)
Quarter: 2017Q3

REPORT INFORMATION
  Report Type: Report from Study
  Country: US (occurrence: US)
  Receive Date: 20170901
  Receipt Date: 20170901
  Transmission Date: 20171127
  Serious: Yes (Other)
  Sender: FDA-Public Use
  Company Number: US-BAYER-2017-161904

PATIENT
  Age: 71 Year
  Sex: Female

DRUGS (3)
  1. ASPIRIN. [Suspect]
     Active Substance: ASPIRIN
     Dosage: UNK UNK, QD
  2. WARFARIN [Suspect]
     Active Substance: WARFARIN
     Dosage: UNK
  3. CLOPIDOGREL [Concomitant]
     Active Substance: CLOPIDOGREL BISULFATE

REACTIONS (4)
  - Drug administration error [None]
  - Subdural haematoma [None]
  - Device related thrombosis [Recovered/Resolved]
  - Labelled drug-drug interaction medication error [None]
